FAERS Safety Report 9165647 (Version 1)
Quarter: 2013Q1

REPORT INFORMATION
  Report Type: Spontaneous
  Country: IT (occurrence: None)
  Receive Date: 20130227
  Receipt Date: 20130227
  Transmission Date: 20140127
  Serious: Yes (Life-Threatening, Other)
  Sender: FDA-Public Use
  Company Number: GER/ITL/13/0028191

PATIENT
  Age: 77 Year
  Sex: Female
  Weight: 52 kg

DRUGS (1)
  1. CLOPIDOGREL (CLOPIDOGREL) [Suspect]
     Indication: PRODUCT USED FOR UNKNOWN INDICATION
     Dates: start: 20121212, end: 20130128

REACTIONS (6)
  - Neutropenia [None]
  - Agranulocytosis [None]
  - Shock [None]
  - Pseudomonas infection [None]
  - Cellulitis [None]
  - Sepsis [None]
